FAERS Safety Report 4502151-X (Version None)
Quarter: 2004Q4

REPORT INFORMATION
  Report Type: 
  Country: None (occurrence: None)
  Receive Date: 20041116
  Receipt Date: 20041105
  Transmission Date: 20050328
  Serious: Yes (Other)
  Sender: FDA-Public Use
  Company Number: AU-JNJFOC-20041101854

PATIENT
  Age: 83 Year
  Sex: Female

DRUGS (6)
  1. TRAMAL [Suspect]
     Indication: DRUG USE FOR UNKNOWN INDICATION
  2. BUPIVACAINE [Suspect]
     Indication: DRUG USE FOR UNKNOWN INDICATION
  3. FENTANYL CITRATE [Suspect]
     Indication: DRUG USE FOR UNKNOWN INDICATION
     Route: 065
  4. ACETAMINOPHEN [Concomitant]
  5. DOCUSATE SODIUM [Concomitant]
  6. SENNOSIDES A+B [Concomitant]

REACTIONS (2)
  - BRADYCARDIA [None]
  - SHOCK [None]
